FAERS Safety Report 23952351 (Version 1)
Quarter: 2024Q2

REPORT INFORMATION
  Report Type: Report from Study
  Country: US (occurrence: US)
  Receive Date: 20240607
  Receipt Date: 20240607
  Transmission Date: 20240715
  Serious: No
  Sender: FDA-Public Use
  Company Number: US-INCYTE CORPORATION-2024IN004902

PATIENT

DRUGS (11)
  1. JAKAFI [Suspect]
     Active Substance: RUXOLITINIB
     Indication: Myeloproliferative neoplasm
     Dosage: 10 MILLIGRAM, BID
     Route: 065
     Dates: start: 20240507
  2. EZETIMIBE [Concomitant]
     Active Substance: EZETIMIBE
     Indication: Product used for unknown indication
     Route: 065
  3. TYLENOL [Concomitant]
     Active Substance: ACETAMINOPHEN
     Indication: Back pain
     Dosage: 650 MILLIGRAM, PRN
     Route: 065
  4. IRON [Concomitant]
     Active Substance: IRON
     Indication: Product used for unknown indication
     Route: 065
  5. FINASTERIDE [Concomitant]
     Active Substance: FINASTERIDE
     Indication: Product used for unknown indication
     Route: 065
  6. FLUTICASONE [Concomitant]
     Active Substance: FLUTICASONE
     Indication: Product used for unknown indication
     Route: 065
  7. MAGNESIUM [Concomitant]
     Active Substance: MAGNESIUM
     Indication: Product used for unknown indication
     Route: 065
  8. PANTOPRAZOLE [Concomitant]
     Active Substance: PANTOPRAZOLE
     Indication: Product used for unknown indication
     Route: 065
  9. MICROLAX [MACROGOL;SODIUM CITRATE;SODIUM LAURYL SULFATE;SORBIC ACID] [Concomitant]
     Indication: Constipation
     Route: 065
  10. ROSUVASTATIN [Concomitant]
     Active Substance: ROSUVASTATIN
     Indication: Product used for unknown indication
     Route: 065
  11. TRAZODONE [Concomitant]
     Active Substance: TRAZODONE HYDROCHLORIDE
     Indication: Product used for unknown indication
     Route: 065

REACTIONS (4)
  - Fatigue [Unknown]
  - Back pain [Unknown]
  - Weight decreased [Unknown]
  - Off label use [Unknown]

NARRATIVE: CASE EVENT DATE: 20240507
